FAERS Safety Report 7541555-8 (Version None)
Quarter: 2011Q2

REPORT INFORMATION
  Report Type: 
  Country: None (occurrence: None)
  Receive Date: 20110613
  Receipt Date: 20110607
  Transmission Date: 20111010
  Serious: No
  Sender: FDA-Public Use
  Company Number: US-PFIZER INC-2011124938

PATIENT
  Sex: Female
  Weight: 53.061 kg

DRUGS (2)
  1. ZYVOX [Suspect]
     Indication: URINARY TRACT INFECTION
     Dosage: UNK
     Route: 042
     Dates: start: 20110525, end: 20110527
  2. ZYVOX [Suspect]
     Dosage: 600 MG, 2X/DAY
     Route: 048
     Dates: start: 20110527, end: 20110603

REACTIONS (5)
  - WEIGHT DECREASED [None]
  - ORAL DISCOMFORT [None]
  - ABDOMINAL DISCOMFORT [None]
  - MALAISE [None]
  - EATING DISORDER [None]
